FAERS Safety Report 9188889 (Version 2)
Quarter: 2013Q2

REPORT INFORMATION
  Report Type: Spontaneous
  Country: BR (occurrence: BR)
  Receive Date: 20130326
  Receipt Date: 20130514
  Transmission Date: 20140414
  Serious: Yes (Hospitalization)
  Sender: FDA-Public Use
  Company Number: BR-B.I. PHARMACEUTICALS,INC./RIDGEFIELD-2013-BR-00278BR

PATIENT
  Sex: Female
  Weight: 60 kg

DRUGS (5)
  1. SPIRIVA RESPIMAT [Suspect]
     Indication: CHRONIC OBSTRUCTIVE PULMONARY DISEASE
     Dosage: 5 MCG
     Route: 055
  2. ALDACTONE [Concomitant]
     Indication: POLLAKIURIA
  3. LASIX [Concomitant]
     Indication: POLLAKIURIA
  4. TAPAZOL [Concomitant]
     Indication: THYROID DISORDER
  5. SERETIDE [Concomitant]
     Indication: CHRONIC OBSTRUCTIVE PULMONARY DISEASE

REACTIONS (1)
  - Pneumonia [Recovered/Resolved]
